FAERS Safety Report 8222490-9 (Version None)
Quarter: 2012Q1

REPORT INFORMATION
  Report Type: 
  Country: None (occurrence: None)
  Receive Date: 20120320
  Receipt Date: 20120315
  Transmission Date: 20120608
  Serious: Yes (Death, Other)
  Sender: FDA-Public Use
  Company Number: PHHY2012FR023256

PATIENT

DRUGS (1)
  1. EVEROLIMUS [Suspect]
     Dosage: UNK UKN, UNK
     Dates: end: 20110320

REACTIONS (3)
  - LUNG DISORDER [None]
  - NEOPLASM MALIGNANT [None]
  - NEOPLASM PROGRESSION [None]
